FAERS Safety Report 9830959 (Version 1)
Quarter: 2014Q1

REPORT INFORMATION
  Report Type: Spontaneous
  Country: AT (occurrence: AT)
  Receive Date: 20140120
  Receipt Date: 20140120
  Transmission Date: 20141002
  Serious: Yes (Other)
  Sender: FDA-Public Use
  Company Number: PHHY2014AT005319

PATIENT
  Age: 50 Year
  Sex: 0

DRUGS (3)
  1. LESCOL [Suspect]
     Dosage: 80 MG, UNK
     Route: 048
  2. LESCOL [Suspect]
     Dosage: UNK UKN, UNK
     Route: 048
  3. MEXALEN [Concomitant]
     Dosage: 1 DF, ONCE/SINGLE

REACTIONS (6)
  - Hepatotoxicity [Unknown]
  - Aspartate aminotransferase increased [Unknown]
  - Alanine aminotransferase increased [Unknown]
  - Gamma-glutamyltransferase increased [Unknown]
  - Blood alkaline phosphatase increased [Unknown]
  - Abdominal pain upper [Unknown]
